FAERS Safety Report 5491544-2 (Version None)
Quarter: 2007Q4

REPORT INFORMATION
  Report Type: 
  Country: None (occurrence: None)
  Receive Date: 20071022
  Receipt Date: 20071012
  Transmission Date: 20080405
  Serious: Yes (Other)
  Sender: FDA-Public Use
  Company Number: PHNR2007AU01985

PATIENT
  Age: 78 Year
  Sex: Female

DRUGS (1)
  1. ZOLEDRONIC ACID [Suspect]
     Indication: MULTIPLE MYELOMA
     Dosage: 3.5 MG, DAILY
     Dates: start: 20031117, end: 20061208

REACTIONS (2)
  - OSTEONECROSIS [None]
  - PAIN IN JAW [None]
